FAERS Safety Report 9307573 (Version 2)
Quarter: 2018Q4

REPORT INFORMATION
  Report Type: Spontaneous
  Country: US (occurrence: US)
  Receive Date: 20130524
  Receipt Date: 20181116
  Transmission Date: 20190205
  Serious: No
  Sender: FDA-Public Use
  Company Number: US-VERTEX PHARMACEUTICALS INC-2013-006386

PATIENT
  Sex: Female

DRUGS (3)
  1. KALYDECO [Suspect]
     Active Substance: IVACAFTOR
     Indication: CYSTIC FIBROSIS
     Dosage: 150 MG, QD
     Route: 048
     Dates: start: 20120823, end: 20180418
  2. KALYDECO [Suspect]
     Active Substance: IVACAFTOR
     Dosage: 150 MG, BID
     Route: 048
     Dates: start: 20181110
  3. PULMOZYME [Concomitant]
     Active Substance: DORNASE ALFA

REACTIONS (3)
  - Hepatic enzyme increased [Unknown]
  - Weight increased [Unknown]
  - Headache [Unknown]

NARRATIVE: CASE EVENT DATE: 2013
